FAERS Safety Report 18158327 (Version 2)
Quarter: 2021Q3

REPORT INFORMATION
  Report Type: Spontaneous
  Country: US (occurrence: US)
  Receive Date: 20200817
  Receipt Date: 20210816
  Transmission Date: 20211014
  Serious: Yes (Hospitalization, Other)
  Sender: FDA-Public Use
  Company Number: US-PURDUE-USA-2020-0161313

PATIENT
  Sex: Male
  Weight: 3.11 kg

DRUGS (5)
  1. BUPRENORPHINE W/NALOXONE [Suspect]
     Active Substance: BUPRENORPHINE HYDROCHLORIDE\NALOXONE HYDROCHLORIDE
     Indication: PRODUCT USED FOR UNKNOWN INDICATION
     Dosage: UNKNOWN
     Route: 064
  2. BUPRENORPHINE TRANSDERMAL PATCH (SIMILAR TO NDA 21?306) [Suspect]
     Active Substance: BUPRENORPHINE
     Indication: PRODUCT USED FOR UNKNOWN INDICATION
     Dosage: UNKNOWN
  3. KLONOPIN [Suspect]
     Active Substance: CLONAZEPAM
     Indication: PRODUCT USED FOR UNKNOWN INDICATION
     Dosage: 0.25 MG, DAILY
  4. ROXICODONE [Suspect]
     Active Substance: OXYCODONE HYDROCHLORIDE
     Indication: PRODUCT USED FOR UNKNOWN INDICATION
     Dosage: 150 MG, DAILY
  5. SUBUTEX [Suspect]
     Active Substance: BUPRENORPHINE HYDROCHLORIDE
     Indication: PRODUCT USED FOR UNKNOWN INDICATION
     Dosage: 16 MG, DAILY

REACTIONS (20)
  - Visual impairment [Unknown]
  - Feeling jittery [Unknown]
  - Movement disorder [Unknown]
  - Drug dependence [Unknown]
  - Sleep disorder [Unknown]
  - Motor dysfunction [Unknown]
  - Tremor neonatal [Unknown]
  - Foetal exposure during pregnancy [Unknown]
  - Sleep terror [Unknown]
  - Psychomotor skills impaired [Unknown]
  - Drug withdrawal syndrome neonatal [Recovered/Resolved]
  - Learning disability [Unknown]
  - Irritability [Unknown]
  - Hypertonia neonatal [Unknown]
  - Myoclonus [Unknown]
  - Exposure to communicable disease [Unknown]
  - Neonatal tachypnoea [Unknown]
  - Disturbance in attention [Unknown]
  - Dermatitis diaper [Unknown]
  - Glassy eyes [Unknown]
